FAERS Safety Report 10166870 (Version 1)
Quarter: 2014Q2

REPORT INFORMATION
  Report Type: Spontaneous
  Country: US (occurrence: None)
  Receive Date: 20140509
  Receipt Date: 20140509
  Transmission Date: 20141212
  Serious: Yes (Disabling)
  Sender: FDA-Public Use
  Company Number: None

PATIENT
  Age: 53 Year
  Sex: Male

DRUGS (1)
  1. LATUDA 40 MG SUNOVION [Suspect]
     Indication: DEPRESSION
     Route: 048
     Dates: start: 20131223, end: 20140121

REACTIONS (6)
  - Suicidal ideation [None]
  - Heart rate increased [None]
  - Tinnitus [None]
  - Visual impairment [None]
  - Asthenia [None]
  - Drug interaction [None]
